FAERS Safety Report 20307792 (Version 1)
Quarter: 2022Q1

REPORT INFORMATION
  Report Type: Spontaneous
  Country: US (occurrence: US)
  Receive Date: 20220107
  Receipt Date: 20220107
  Transmission Date: 20220423
  Serious: No
  Sender: FDA-Public Use
  Company Number: US-ALLERGAN-2138851US

PATIENT
  Sex: Male

DRUGS (4)
  1. QULIPTA [Suspect]
     Active Substance: ATOGEPANT
     Indication: Migraine
     Dosage: 60 MG, QD
     Route: 048
     Dates: start: 20211108
  2. COVID-19 VACCINE [Concomitant]
  3. PROPRANOLOL [Concomitant]
     Active Substance: PROPRANOLOL HYDROCHLORIDE
     Indication: Headache
  4. METOCLOPRAMIDE [Concomitant]
     Active Substance: METOCLOPRAMIDE
     Indication: Nausea

REACTIONS (2)
  - Headache [Unknown]
  - Drug ineffective [Unknown]
